FAERS Safety Report 5800133-9 (Version None)
Quarter: 2008Q2

REPORT INFORMATION
  Report Type: 
  Country: None (occurrence: None)
  Receive Date: 20080626
  Receipt Date: 20070511
  Transmission Date: 20081010
  Serious: No
  Sender: FDA-Public Use
  Company Number: APP200700086

PATIENT
  Age: 34 Year
  Sex: Female
  Weight: 101.6057 kg

DRUGS (1)
  1. SENSORCAINE-MPF SPINAL (BUPIVACAINE HYDROCHLORIDE) [Suspect]
     Indication: ANAESTHESIA
     Dosage: 1.6 ML, ONCE, SPINAL
     Dates: start: 20050817, end: 20050817

REACTIONS (1)
  - DRUG INEFFECTIVE [None]
